FAERS Safety Report 18033384 (Version 2)
Quarter: 2020Q3

REPORT INFORMATION
  Report Type: Spontaneous
  Country: IT (occurrence: IT)
  Receive Date: 20200716
  Receipt Date: 20200724
  Transmission Date: 20201103
  Serious: Yes (Hospitalization, Other)
  Sender: FDA-Public Use
  Company Number: IT-PFIZER INC-2020270958

PATIENT
  Age: 17 Year
  Sex: Male

DRUGS (3)
  1. CLONAZEPAM. [Suspect]
     Active Substance: CLONAZEPAM
     Indication: SUBSTANCE ABUSE
     Dosage: UNK
     Dates: start: 20200627, end: 20200627
  2. PREGABALIN. [Suspect]
     Active Substance: PREGABALIN
     Indication: SUBSTANCE ABUSE
     Dosage: UNK
     Route: 048
     Dates: start: 20200627, end: 20200627
  3. MARIJUANA [Concomitant]
     Active Substance: CANNABIS SATIVA SUBSP. INDICA TOP
     Dosage: UNK

REACTIONS (6)
  - Off label use [Unknown]
  - Loss of consciousness [Recovering/Resolving]
  - Bradykinesia [Recovering/Resolving]
  - Product use issue [Unknown]
  - Drug abuse [Recovering/Resolving]
  - Bradyphrenia [Recovering/Resolving]

NARRATIVE: CASE EVENT DATE: 20200627
